FAERS Safety Report 6036160-9 (Version None)
Quarter: 2009Q1

REPORT INFORMATION
  Report Type: 
  Country: None (occurrence: None)
  Receive Date: 20090113
  Receipt Date: 20081231
  Transmission Date: 20090719
  Serious: No
  Sender: FDA-Public Use
  Company Number: US-B.I. PHARMACEUTICALS,INC./RIDGEFIELD-2009-BP-00020BP

PATIENT
  Age: 61 Year
  Sex: Female

DRUGS (2)
  1. MICARDIS [Suspect]
     Indication: HYPERTENSION
     Dosage: 40MG
     Route: 048
     Dates: start: 20080922
  2. MICARDIS [Suspect]
     Dosage: 20MG
     Route: 048
     Dates: start: 20080820, end: 20080921

REACTIONS (2)
  - ALOPECIA [None]
  - DRUG INEFFECTIVE [None]
